FAERS Safety Report 9774311 (Version 4)
Quarter: 2014Q1

REPORT INFORMATION
  Report Type: Report from Study
  Country: GB (occurrence: GB)
  Receive Date: 20131220
  Receipt Date: 20140121
  Transmission Date: 20141002
  Serious: Yes (Death, Hospitalization)
  Sender: FDA-Public Use
  Company Number: GB-ROCHE-1236324

PATIENT
  Age: 64 Year
  Sex: Male
  Weight: 79.3 kg

DRUGS (16)
  1. OBINUTUZUMAB [Suspect]
     Indication: NON-HODGKIN^S LYMPHOMA UNSPECIFIED HISTOLOGY INDOLENT
     Dosage: THE DATE OF LAST DOSE OF OBINITUZUMAB WAS ON 09/MAY/2013, 18/JUL/2013
     Route: 042
     Dates: start: 20121023
  2. BENDAMUSTINE [Suspect]
     Indication: NON-HODGKIN^S LYMPHOMA UNSPECIFIED HISTOLOGY INDOLENT
     Dosage: THE DATE OF LAST DOSE OF BEDAMUSTINE WAS ON 13/MAR/2013
     Route: 042
     Dates: start: 20121023, end: 20130313
  3. METOCLOPRAMIDE [Concomitant]
     Indication: PROPHYLAXIS OF NAUSEA AND VOMITING
     Route: 065
     Dates: start: 20121023
  4. BENZYDAMINE [Concomitant]
     Indication: OROPHARYNGEAL PAIN
     Route: 065
     Dates: start: 20130801
  5. FLUCONAZOLE [Concomitant]
     Indication: INFECTION
     Route: 065
     Dates: start: 20130801
  6. PARACETAMOL [Concomitant]
     Indication: PAIN
     Route: 065
     Dates: start: 20130801
  7. PARACETAMOL [Concomitant]
     Route: 065
     Dates: start: 20130821, end: 20130912
  8. PIPERACILLIN [Concomitant]
     Indication: INFECTION
     Route: 065
     Dates: start: 20130801
  9. TAZOBACTAM [Concomitant]
     Indication: INFECTION
     Route: 065
     Dates: start: 20130801
  10. AMOXICILLIN SODIUM/CLAVULANATE POTASSIUM [Concomitant]
     Indication: INFECTION
     Dosage: 1G PLUS 200MG RESPECTIVELY
     Route: 065
     Dates: start: 20130821, end: 20130825
  11. CARBOCISTEINE [Concomitant]
     Route: 065
     Dates: start: 20130904
  12. VOLPLEX [Concomitant]
     Indication: HYPOVOLAEMIA
     Route: 065
     Dates: start: 20130822, end: 20130822
  13. OXYGEN THERAPY [Concomitant]
     Indication: DYSPNOEA
     Route: 065
     Dates: start: 20130823, end: 20130823
  14. TAZOCIN [Concomitant]
     Indication: INFECTION
     Route: 065
     Dates: start: 20130801
  15. TAZOCIN [Concomitant]
     Route: 065
     Dates: start: 20130825, end: 20130827
  16. TAZOCIN [Concomitant]
     Route: 065
     Dates: start: 20130905, end: 20130916

REACTIONS (2)
  - Pseudomonal sepsis [Fatal]
  - Pyrexia [Recovered/Resolved]
